FAERS Safety Report 20028428 (Version 1)
Quarter: 2021Q4

REPORT INFORMATION
  Report Type: Spontaneous
  Country: US (occurrence: US)
  Receive Date: 20211103
  Receipt Date: 20211103
  Transmission Date: 20220304
  Serious: No
  Sender: FDA-Public Use
  Company Number: US-ELI_LILLY_AND_COMPANY-US202111000765

PATIENT
  Sex: Male

DRUGS (1)
  1. FORTEO [Suspect]
     Active Substance: TERIPARATIDE
     Indication: Product used for unknown indication
     Dosage: UNK UNK, UNKNOWN
     Route: 065

REACTIONS (8)
  - Illness [Unknown]
  - Cold sweat [Unknown]
  - Pyrexia [Unknown]
  - Gait disturbance [Unknown]
  - Presyncope [Unknown]
  - Dizziness [Unknown]
  - Nausea [Unknown]
  - Product storage error [Unknown]
